FAERS Safety Report 9502185 (Version 1)
Quarter: 2013Q3

REPORT INFORMATION
  Report Type: Report from Study
  Country: US (occurrence: US)
  Receive Date: 20130905
  Receipt Date: 20130905
  Transmission Date: 20140515
  Serious: Yes (Other)
  Sender: FDA-Public Use
  Company Number: US-ABBOTT-13P-163-1140533-00

PATIENT
  Sex: Female

DRUGS (3)
  1. HUMIRA [Suspect]
     Indication: CROHN^S DISEASE
     Dates: start: 20130802, end: 20130802
  2. HUMIRA [Suspect]
     Dates: start: 20130818, end: 20130818
  3. HUMIRA [Suspect]

REACTIONS (3)
  - Loss of consciousness [Recovering/Resolving]
  - Incorrect drug administration duration [Unknown]
  - Middle insomnia [Unknown]
